FAERS Safety Report 13108699 (Version 2)
Quarter: 2017Q3

REPORT INFORMATION
  Report Type: Spontaneous
  Country: US (occurrence: US)
  Receive Date: 20170112
  Receipt Date: 20170824
  Transmission Date: 20171127
  Serious: Yes (Other)
  Sender: FDA-Public Use
  Company Number: GXBR2016US002137

PATIENT
  Sex: Male

DRUGS (1)
  1. TEMAZEPAM CAPSULES USP [Suspect]
     Active Substance: TEMAZEPAM
     Indication: INSOMNIA
     Dosage: 30 MG, UNK
     Route: 065

REACTIONS (5)
  - Intentional product use issue [Unknown]
  - Oedema [Not Recovered/Not Resolved]
  - Inflammation [Unknown]
  - Polymyalgia rheumatica [Unknown]
  - Pain [Unknown]

NARRATIVE: CASE EVENT DATE: 2016
